FAERS Safety Report 5850987-5 (Version None)
Quarter: 2008Q3

REPORT INFORMATION
  Report Type: 
  Country: None (occurrence: None)
  Receive Date: 20080820
  Receipt Date: 20080814
  Transmission Date: 20090109
  Serious: Yes (Hospitalization, Other)
  Sender: FDA-Public Use
  Company Number: US-ASTRAZENECA-2008UW13014

PATIENT
  Age: 13535 Day
  Sex: Male
  Weight: 90.7 kg

DRUGS (5)
  1. SYMBICORT [Suspect]
     Indication: ASTHMA
     Route: 055
  2. SYMBICORT [Suspect]
     Dosage: 160/4.5 MCG ONE PUFF BID
     Route: 055
     Dates: start: 20080513, end: 20080516
  3. ADVAIR DISKUS 100/50 [Concomitant]
  4. ZOLOFT [Concomitant]
  5. NASONEX [Concomitant]

REACTIONS (6)
  - BLOOD ELECTROLYTES DECREASED [None]
  - BURNING SENSATION [None]
  - DIVERTICULITIS [None]
  - OVERDOSE [None]
  - TACHYCARDIA [None]
  - TREMOR [None]
